FAERS Safety Report 7688072-2 (Version None)
Quarter: 2011Q3

REPORT INFORMATION
  Report Type: 
  Country: None (occurrence: None)
  Receive Date: 20110817
  Receipt Date: 20110808
  Transmission Date: 20111222
  Serious: Yes (Other)
  Sender: FDA-Public Use
  Company Number: US-BRISTOL-MYERS SQUIBB COMPANY-15952484

PATIENT
  Age: 7 Decade
  Sex: Female

DRUGS (3)
  1. MITOMYCIN [Suspect]
     Indication: ANAL CANCER
     Dosage: INITIAL DOSE:10MG/M2 FROM APR2006 18MG/M2 Q3W
  2. FLUOROURACIL [Concomitant]
     Indication: ANAL CANCER
     Dates: end: 20011101
  3. CETUXIMAB [Concomitant]
     Indication: ANAL CANCER

REACTIONS (2)
  - THROMBOTIC THROMBOCYTOPENIC PURPURA [None]
  - HAEMOLYTIC URAEMIC SYNDROME [None]
